FAERS Safety Report 13221292 (Version 2)
Quarter: 2017Q1

REPORT INFORMATION
  Report Type: Report from Study
  Country: US (occurrence: US)
  Receive Date: 20170211
  Receipt Date: 20170313
  Transmission Date: 20170428
  Serious: Yes (Life-Threatening, Hospitalization, Other)
  Sender: FDA-Public Use
  Company Number: PHEH2017US004315

PATIENT
  Age: 64 Year
  Sex: Female

DRUGS (1)
  1. COSENTYX [Suspect]
     Active Substance: SECUKINUMAB
     Indication: PSORIASIS
     Dosage: 300 MG, QW
     Route: 030
     Dates: start: 20170127

REACTIONS (13)
  - Injection site bruising [Unknown]
  - Back pain [Unknown]
  - Headache [Recovering/Resolving]
  - Chills [Unknown]
  - Immunosuppression [Unknown]
  - Cough [Recovering/Resolving]
  - Oropharyngeal pain [Recovering/Resolving]
  - Pain [Recovering/Resolving]
  - Pain in extremity [Unknown]
  - Diarrhoea [Recovering/Resolving]
  - Feeling abnormal [Unknown]
  - Incorrect route of drug administration [Unknown]
  - Bronchitis chronic [Recovering/Resolving]

NARRATIVE: CASE EVENT DATE: 20170209
